FAERS Safety Report 9304357 (Version 4)
Quarter: 2013Q4

REPORT INFORMATION
  Report Type: Spontaneous
  Country: JP (occurrence: JP)
  Receive Date: 20130522
  Receipt Date: 20131031
  Transmission Date: 20140711
  Serious: Yes (Life-Threatening, Hospitalization, Other)
  Sender: FDA-Public Use
  Company Number: PHHY2013JP046641

PATIENT
  Age: 25 Year
  Sex: Female
  Weight: 42 kg

DRUGS (8)
  1. NEORAL [Suspect]
     Indication: IMMUNOSUPPRESSANT DRUG THERAPY
     Dosage: 200 TO 250 MG DAILY
     Route: 048
     Dates: start: 20100918, end: 20120410
  2. SIMULECT [Suspect]
     Indication: IMMUNOSUPPRESSANT DRUG THERAPY
     Dosage: 20 MG, UNK
     Route: 042
     Dates: start: 20100917, end: 20100917
  3. SIMULECT [Suspect]
     Dosage: 20 MG, UNK
     Route: 042
     Dates: start: 20100921, end: 20100921
  4. METHYLPREDNISOLONE [Suspect]
     Indication: IMMUNOSUPPRESSANT DRUG THERAPY
     Dosage: 125 TO 500 MG DAILY
     Route: 042
     Dates: start: 20110421, end: 20110428
  5. CELLCEPT [Suspect]
     Indication: IMMUNOSUPPRESSANT DRUG THERAPY
     Dosage: 300 TO 1000 MG DAILY
     Route: 048
     Dates: start: 20100918, end: 20120209
  6. PREDONINE [Suspect]
     Indication: IMMUNOSUPPRESSANT DRUG THERAPY
     Dosage: 50 MG, UNK
     Route: 048
     Dates: start: 20100918, end: 20120420
  7. PREDONINE [Suspect]
     Dosage: 50 MG, UNK
     Route: 042
     Dates: start: 20100918, end: 20100918
  8. BREDININ [Suspect]
     Indication: IMMUNOSUPPRESSANT DRUG THERAPY
     Dosage: 50 TO 100MG DAILY
     Route: 048
     Dates: start: 20110415, end: 20120308

REACTIONS (5)
  - Post transplant lymphoproliferative disorder [Recovering/Resolving]
  - Epstein-Barr virus antibody positive [Recovering/Resolving]
  - Cytomegalovirus infection [Recovered/Resolved]
  - Non-Hodgkin^s lymphoma [Recovering/Resolving]
  - Kidney transplant rejection [Recovering/Resolving]
